FAERS Safety Report 13104429 (Version 1)
Quarter: 2017Q1

REPORT INFORMATION
  Report Type: Spontaneous
  Country: US (occurrence: US)
  Receive Date: 20170110
  Receipt Date: 20170110
  Transmission Date: 20170428
  Serious: Yes (Life-Threatening)
  Sender: FDA-Public Use
  Company Number: None

PATIENT
  Age: 63 Year
  Sex: Female
  Weight: 72 kg

DRUGS (2)
  1. MEPROZINE 50/25 CAPSULES QUA [Suspect]
     Active Substance: MEPERIDINE\PROMETHAZINE
     Indication: BUNION OPERATION
     Dosage: ?          OTHER STRENGTH:DO NOT KNOW;QUANTITY:25 CAPSULE(S);?
     Route: 048
     Dates: start: 20060126, end: 20060126
  2. MEPROZINE 50/25 CAPSULES QUA [Suspect]
     Active Substance: MEPERIDINE\PROMETHAZINE
     Indication: PROCEDURAL PAIN
     Dosage: ?          OTHER STRENGTH:DO NOT KNOW;QUANTITY:25 CAPSULE(S);?
     Route: 048
     Dates: start: 20060126, end: 20060126

REACTIONS (1)
  - Anaphylactic shock [None]

NARRATIVE: CASE EVENT DATE: 20060115
